FAERS Safety Report 13662781 (Version 1)
Quarter: 2017Q2

REPORT INFORMATION
  Report Type: Spontaneous
  Country: US (occurrence: US)
  Receive Date: 20170616
  Receipt Date: 20170616
  Transmission Date: 20170830
  Serious: No
  Sender: FDA-Public Use
  Company Number: None

PATIENT
  Age: 27 Year
  Sex: Female
  Weight: 60.75 kg

DRUGS (5)
  1. DELZICOL [Concomitant]
     Active Substance: MESALAMINE
  2. ZINC. [Concomitant]
     Active Substance: ZINC
  3. PRE-NATAL VITAMINS [Concomitant]
  4. VITAMIN D [Concomitant]
     Active Substance: CHOLECALCIFEROL
  5. REMICADE [Suspect]
     Active Substance: INFLIXIMAB
     Indication: COLITIS ULCERATIVE
     Dates: start: 20170405, end: 20170427

REACTIONS (3)
  - Depression [None]
  - Acne [None]
  - Weight increased [None]

NARRATIVE: CASE EVENT DATE: 20170405
